FAERS Safety Report 17846882 (Version 1)
Quarter: 2020Q2

REPORT INFORMATION
  Report Type: Spontaneous
  Country: US (occurrence: US)
  Receive Date: 20200601
  Receipt Date: 20200601
  Transmission Date: 20200714
  Serious: Yes (Other)
  Sender: FDA-Public Use
  Company Number: US-MYLANLABS-2020M1052918

PATIENT
  Age: 7 Decade
  Sex: Male

DRUGS (5)
  1. CLINDAMYCIN. [Concomitant]
     Active Substance: CLINDAMYCIN
     Indication: EVIDENCE BASED TREATMENT
     Route: 061
  2. POSACONAZOLE [Concomitant]
     Active Substance: POSACONAZOLE
     Indication: MUCORMYCOSIS
  3. POSACONAZOLE [Concomitant]
     Active Substance: POSACONAZOLE
     Indication: EVIDENCE BASED TREATMENT
     Dosage: 400 MILLIGRAM, BID
     Route: 048
  4. FLUCONAZOLE. [Suspect]
     Active Substance: FLUCONAZOLE
     Indication: MUCORMYCOSIS
     Dosage: EXTENDED COURSES OF FLUCONAZOLE
     Route: 065
  5. CHLORHEXIDINE [Concomitant]
     Active Substance: CHLORHEXIDINE
     Indication: EVIDENCE BASED TREATMENT
     Dosage: CHLORHEXIDINE WASHES
     Route: 065

REACTIONS (1)
  - Drug ineffective [Unknown]
